FAERS Safety Report 21389438 (Version 1)
Quarter: 2022Q3

REPORT INFORMATION
  Report Type: Report from Study
  Country: BR (occurrence: BR)
  Receive Date: 20220929
  Receipt Date: 20220929
  Transmission Date: 20221026
  Serious: Yes (Hospitalization, Other)
  Sender: FDA-Public Use
  Company Number: BR-BIOGEN-2022BI01157059

PATIENT
  Age: 12 Year
  Sex: Female
  Weight: 54 kg

DRUGS (5)
  1. SPINRAZA [Suspect]
     Active Substance: NUSINERSEN
     Indication: Spinal muscular atrophy
     Route: 050
     Dates: start: 202007
  2. DECADRON [Concomitant]
     Active Substance: DEXAMETHASONE
     Indication: Product used for unknown indication
     Dosage: HALF CAPSULE
     Route: 050
     Dates: start: 202206
  3. Pamelor (nortriptyline hydrochloride) [Concomitant]
     Indication: Depression
     Route: 050
     Dates: start: 202206
  4. Velija (Duloxetine Hydrochloride) [Concomitant]
     Indication: Depression
     Route: 050
     Dates: start: 2020
  5. ZOLPIDEM [Concomitant]
     Active Substance: ZOLPIDEM TARTRATE
     Indication: Insomnia
     Route: 050
     Dates: start: 2021

REACTIONS (3)
  - Seizure [Not Recovered/Not Resolved]
  - Deformity [Unknown]
  - Rubber sensitivity [Unknown]

NARRATIVE: CASE EVENT DATE: 20220101
